FAERS Safety Report 7204341-4 (Version None)
Quarter: 2010Q4

REPORT INFORMATION
  Report Type: 
  Country: None (occurrence: None)
  Receive Date: 20101230
  Receipt Date: 20101222
  Transmission Date: 20110411
  Serious: Yes (Hospitalization)
  Sender: FDA-Public Use
  Company Number: SE-ROCHE-750316

PATIENT

DRUGS (2)
  1. CAPECITABINE [Suspect]
     Indication: OESOPHAGEAL CANCER METASTATIC
     Dosage: LAST DOSE PRIOR TO SAE: 26 NOVEMBER 2010, REPORTED AS COURSE 2
     Route: 065
     Dates: start: 20101029
  2. DOCETAXEL [Suspect]
     Indication: OESOPHAGEAL CANCER METASTATIC
     Dosage: LAST DOSE PRIOR TO SAE: 26 NOVEMBER 2010, REPORTED AS COURSE 2
     Route: 065
     Dates: start: 20101029

REACTIONS (1)
  - MALNUTRITION [None]
